FAERS Safety Report 10456648 (Version 3)
Quarter: 2014Q4

REPORT INFORMATION
  Report Type: Spontaneous
  Country: GR (occurrence: GR)
  Receive Date: 20140916
  Receipt Date: 20141118
  Transmission Date: 20150528
  Serious: Yes (Other)
  Sender: FDA-Public Use
  Company Number: GR-PFIZER INC-2014255409

PATIENT
  Age: 73 Year
  Sex: Female

DRUGS (1)
  1. AMIODARONE HCL [Suspect]
     Active Substance: AMIODARONE HYDROCHLORIDE
     Dosage: UNK
     Route: 065

REACTIONS (2)
  - Gene mutation [Unknown]
  - Hyperthyroidism [Unknown]
